FAERS Safety Report 5206007-9 (Version None)
Quarter: 2007Q1

REPORT INFORMATION
  Report Type: 
  Country: None (occurrence: None)
  Receive Date: 20070108
  Receipt Date: 20061227
  Transmission Date: 20070707
  Serious: Yes (Death)
  Sender: FDA-Public Use
  Company Number: HQWYE064302JAN07

PATIENT
  Age: 70 Year

DRUGS (1)
  1. ANCARON (AMIODARONE, UNSPEC) [Suspect]
     Dosage: ORAL
     Route: 048

REACTIONS (1)
  - CARDIAC ARREST [None]
